FAERS Safety Report 15183177 (Version 2)
Quarter: 2018Q3

REPORT INFORMATION
  Report Type: Report from Study
  Country: US (occurrence: US)
  Receive Date: 20180723
  Receipt Date: 20180726
  Transmission Date: 20181010
  Serious: Yes (Hospitalization, Other)
  Sender: FDA-Public Use
  Company Number: US-GILEAD-2018-0351234

PATIENT
  Age: 73 Year
  Sex: Female

DRUGS (2)
  1. AMBRISENTAN [Suspect]
     Active Substance: AMBRISENTAN
     Indication: PRODUCT USED FOR UNKNOWN INDICATION
     Dosage: 5 MG, QD
     Route: 065
     Dates: start: 20180129, end: 20180713
  2. VENTAVIS [Concomitant]
     Active Substance: ILOPROST

REACTIONS (5)
  - Syncope [Recovered/Resolved]
  - Insurance issue [Not Recovered/Not Resolved]
  - Implantable cardiac monitor insertion [Unknown]
  - Dehydration [Unknown]
  - Chest injury [Recovered/Resolved]
